FAERS Safety Report 13502765 (Version 2)
Quarter: 2017Q3

REPORT INFORMATION
  Report Type: Spontaneous
  Country: JP (occurrence: JP)
  Receive Date: 20170502
  Receipt Date: 20170714
  Transmission Date: 20171127
  Serious: Yes (Congenital Anomaly, Other)
  Sender: FDA-Public Use
  Company Number: JP-APOTEX-2017AP011185

PATIENT

DRUGS (1)
  1. PAXIL [Suspect]
     Active Substance: PAROXETINE HYDROCHLORIDE
     Dosage: UNK
     Route: 064

REACTIONS (10)
  - Echolalia [Unknown]
  - Stereotypy [Unknown]
  - Irritability [Unknown]
  - Foetal exposure during pregnancy [Unknown]
  - Congenital infection [Unknown]
  - Autism spectrum disorder [Unknown]
  - Febrile convulsion [Unknown]
  - Vertical infection transmission [Unknown]
  - Separation anxiety disorder [Unknown]
  - Premature baby [Unknown]
